FAERS Safety Report 20972201 (Version 1)
Quarter: 2022Q2

REPORT INFORMATION
  Report Type: Report from Study
  Country: BR (occurrence: BR)
  Receive Date: 20220616
  Receipt Date: 20220616
  Transmission Date: 20220721
  Serious: Yes (Death, Other)
  Sender: FDA-Public Use
  Company Number: BR-JNJFOC-20220616224

PATIENT
  Age: 6 Decade
  Sex: Male
  Weight: 70 kg

DRUGS (2)
  1. INFLIXIMAB [Suspect]
     Active Substance: INFLIXIMAB
     Indication: Psoriatic arthropathy
     Dosage: 4 AMPOULES
     Route: 041
     Dates: start: 2018, end: 202108
  2. MESALAMINE [Concomitant]
     Active Substance: MESALAMINE
     Route: 065

REACTIONS (3)
  - Malignant peritoneal neoplasm [Fatal]
  - Pulmonary embolism [Unknown]
  - Intestinal obstruction [Unknown]

NARRATIVE: CASE EVENT DATE: 20211001
